FAERS Safety Report 7780468-3 (Version None)
Quarter: 2011Q3

REPORT INFORMATION
  Report Type: 
  Country: None (occurrence: None)
  Receive Date: 20110927
  Receipt Date: 20110914
  Transmission Date: 20111222
  Serious: Yes (Other)
  Sender: FDA-Public Use
  Company Number: JP-ASTRAZENECA-2011SE56790

PATIENT
  Age: 87 Year
  Sex: Male

DRUGS (4)
  1. SEFMAZON [Concomitant]
     Indication: THERMAL BURN
     Dates: start: 20110508, end: 20110516
  2. RISPERDAL [Suspect]
     Indication: DELIRIUM
     Route: 048
     Dates: start: 20110511, end: 20110520
  3. RISPERDAL [Suspect]
     Route: 048
     Dates: start: 20110521, end: 20110601
  4. SEROQUEL [Suspect]
     Indication: DELIRIUM
     Route: 048
     Dates: start: 20110521, end: 20110601

REACTIONS (2)
  - NEUROLEPTIC MALIGNANT SYNDROME [None]
  - OFF LABEL USE [None]
